FAERS Safety Report 6460403-0 (Version None)
Quarter: 2009Q4

REPORT INFORMATION
  Report Type: 
  Country: None (occurrence: None)
  Receive Date: 20091130
  Receipt Date: 20091119
  Transmission Date: 20100525
  Serious: Yes (Hospitalization)
  Sender: FDA-Public Use
  Company Number: FR-ROCHE-616268

PATIENT
  Sex: Female
  Weight: 96 kg

DRUGS (12)
  1. PEG-INTERFERON ALFA 2A (RO 25-8310) [Suspect]
     Dosage: DATE OF LAST DOSE PRIOR TO SAE: 10 OCT 2008
     Route: 058
     Dates: start: 20070529
  2. RIBAVIRIN [Suspect]
     Dosage: DATE OF LAST DOSE PRIOR TO SAE 14 OCT 2008
     Route: 048
     Dates: start: 20070529
  3. EPOETIN BETA [Suspect]
     Indication: DRUG USE FOR UNKNOWN INDICATION
     Dosage: DOSE: 30000 UI., DATE OF LAST DOSE PRIOR TO SAE IS 08 OCT 2009
     Route: 058
     Dates: start: 20070613
  4. ATENOLOL [Concomitant]
     Dates: start: 19860101
  5. DEROXAT [Concomitant]
     Dates: start: 20060314, end: 20081230
  6. UTROGESTAN [Concomitant]
     Dates: start: 20050101
  7. ESTROGEL [Concomitant]
     Dates: start: 20050101
  8. ZYLORIC [Concomitant]
     Dates: start: 20070914, end: 20081113
  9. STILNOX [Concomitant]
     Dates: start: 20071101
  10. LOCOID [Concomitant]
     Dosage: DRUG REPORTED AS LOCOID LOTION. TDD:APPLICATION.
     Dates: start: 20071201
  11. XYZAL [Concomitant]
     Dates: start: 20080721
  12. ALDALIX [Concomitant]
     Dates: end: 20081201

REACTIONS (1)
  - CHOLECYSTITIS [None]
